FAERS Safety Report 21101053 (Version 2)
Quarter: 2022Q3

REPORT INFORMATION
  Report Type: Spontaneous
  Country: US (occurrence: US)
  Receive Date: 20220719
  Receipt Date: 20220826
  Transmission Date: 20221027
  Serious: No
  Sender: FDA-Public Use
  Company Number: US-PFIZER INC-202200966247

PATIENT
  Age: 75 Year
  Sex: Female
  Weight: 72.57 kg

DRUGS (1)
  1. PAXLOVID [Suspect]
     Active Substance: NIRMATRELVIR\RITONAVIR
     Indication: COVID-19 treatment
     Dosage: 150 MG, 2X/DAY
     Dates: start: 20220713

REACTIONS (3)
  - Dysgeusia [Recovered/Resolved]
  - Product taste abnormal [Unknown]
  - Incorrect dose administered [Unknown]

NARRATIVE: CASE EVENT DATE: 20220713
